FAERS Safety Report 9001668 (Version 8)
Quarter: 2013Q4

REPORT INFORMATION
  Report Type: Spontaneous
  Country: JP (occurrence: JP)
  Receive Date: 20130107
  Receipt Date: 20131008
  Transmission Date: 20140711
  Serious: Yes (Hospitalization)
  Sender: FDA-Public Use
  Company Number: JP-B.I. PHARMACEUTICALS,INC./RIDGEFIELD-2013-BI-00323NB

PATIENT
  Age: 66 Year
  Sex: Male
  Weight: 77.5 kg

DRUGS (3)
  1. SPIRIVA [Suspect]
     Indication: CHRONIC OBSTRUCTIVE PULMONARY DISEASE
     Dosage: 18 MCG
     Route: 055
     Dates: start: 20111125, end: 20130215
  2. PH-797804/PLACEBO [Concomitant]
     Indication: CHRONIC OBSTRUCTIVE PULMONARY DISEASE
     Dosage: 0.25 MG
     Route: 048
     Dates: start: 20121106, end: 20130131
  3. SULTANOL [Concomitant]
     Indication: CHRONIC OBSTRUCTIVE PULMONARY DISEASE
     Route: 055
     Dates: start: 20121009, end: 20130215

REACTIONS (2)
  - Ilium fracture [Not Recovered/Not Resolved]
  - Fall [Not Recovered/Not Resolved]
